FAERS Safety Report 4970656-3 (Version None)
Quarter: 2006Q2

REPORT INFORMATION
  Report Type: 
  Country: None (occurrence: None)
  Receive Date: 20060412
  Receipt Date: 20050829
  Transmission Date: 20061013
  Serious: Yes (Hospitalization)
  Sender: FDA-Public Use
  Company Number: US-MERCK-0508USA05069

PATIENT
  Age: 55 Year
  Sex: Female
  Weight: 79 kg

DRUGS (5)
  1. VIOXX [Suspect]
     Indication: ARTHRITIS
     Route: 048
     Dates: start: 20000322, end: 20030923
  2. LASIX [Concomitant]
     Route: 065
  3. PRINIVIL [Concomitant]
     Route: 048
  4. ZYRTEC [Concomitant]
     Indication: SINUS DISORDER
     Route: 048
  5. SONATA [Concomitant]
     Indication: INSOMNIA
     Route: 048

REACTIONS (19)
  - AMNESIA [None]
  - ANGINA UNSTABLE [None]
  - ANXIETY [None]
  - ARTHROPATHY [None]
  - ATRIOVENTRICULAR BLOCK [None]
  - BACK PAIN [None]
  - BLOOD PRESSURE INCREASED [None]
  - CHOLELITHIASIS [None]
  - DIVERTICULUM [None]
  - HEADACHE [None]
  - HYPERLIPIDAEMIA [None]
  - HYPERTHYROIDISM [None]
  - HYPOTHYROIDISM [None]
  - INJURY [None]
  - INTERVERTEBRAL DISC DISORDER [None]
  - PLANTAR FASCIITIS [None]
  - RHINITIS ALLERGIC [None]
  - SLEEP APNOEA SYNDROME [None]
  - THYROID GLAND SCAN ABNORMAL [None]
